FAERS Safety Report 5741326-9 (Version None)
Quarter: 2008Q2

REPORT INFORMATION
  Report Type: 
  Country: None (occurrence: None)
  Receive Date: 20080515
  Receipt Date: 20080508
  Transmission Date: 20081010
  Serious: Yes (Other)
  Sender: FDA-Public Use
  Company Number: 2008SP008760

PATIENT
  Age: 56 Year
  Sex: Male
  Weight: 104.3273 kg

DRUGS (2)
  1. PEG-INTRON [Suspect]
     Indication: HEPATITIS C
     Dosage: SC
     Route: 058
     Dates: start: 20080320
  2. RIBAVIRIN [Suspect]
     Indication: HEPATITIS C
     Dosage: PO
     Route: 048
     Dates: start: 20080320

REACTIONS (13)
  - ARTHRALGIA [None]
  - BACTERIAL INFECTION [None]
  - DYSGEUSIA [None]
  - DYSPEPSIA [None]
  - GASTRIC DISORDER [None]
  - HAEMATEMESIS [None]
  - HALLUCINATION, VISUAL [None]
  - INFLUENZA [None]
  - INSOMNIA [None]
  - LIP DRY [None]
  - PYREXIA [None]
  - RASH [None]
  - WEIGHT DECREASED [None]
